FAERS Safety Report 10349430 (Version 2)
Quarter: 2014Q3

REPORT INFORMATION
  Report Type: Spontaneous
  Country: US (occurrence: US)
  Receive Date: 20140730
  Receipt Date: 20140730
  Transmission Date: 20150326
  Serious: Yes (Hospitalization, Other)
  Sender: FDA-Public Use
  Company Number: US-AMGEN-USASP2014028913

PATIENT
  Age: 56 Year
  Sex: Female

DRUGS (3)
  1. ENBREL [Suspect]
     Active Substance: ETANERCEPT
     Indication: RHEUMATOID ARTHRITIS
     Dosage: 50 MG, QWK
     Route: 065
     Dates: start: 20130101
  2. METHOTREXATE [Concomitant]
     Active Substance: METHOTREXATE
     Dosage: 8 TABLET WEEKLY
  3. ENBREL [Suspect]
     Active Substance: ETANERCEPT
     Dosage: UNK
     Route: 065

REACTIONS (9)
  - Rheumatoid arthritis [Not Recovered/Not Resolved]
  - Bronchitis [Not Recovered/Not Resolved]
  - Sinusitis [Not Recovered/Not Resolved]
  - Osteoarthritis [Recovered/Resolved]
  - Pneumonia [Not Recovered/Not Resolved]
  - Arthralgia [Not Recovered/Not Resolved]
  - Pain in extremity [Not Recovered/Not Resolved]
  - Sinus tachycardia [Not Recovered/Not Resolved]
  - Condition aggravated [Not Recovered/Not Resolved]

NARRATIVE: CASE EVENT DATE: 201301
